FAERS Safety Report 16456936 (Version 1)
Quarter: 2019Q3

REPORT INFORMATION
  Report Type: Spontaneous
  Country: US (occurrence: US)
  Receive Date: 20190619
  Receipt Date: 20190619
  Transmission Date: 20191004
  Serious: Yes (Hospitalization, Other)
  Sender: FDA-Public Use
  Company Number: None

PATIENT
  Age: 2 Year
  Sex: Female
  Weight: 18.6 kg

DRUGS (7)
  1. TUBERCULIN INJECTION [Concomitant]
     Dates: start: 20190606, end: 20190606
  2. ACETAMINOPHEN. [Concomitant]
     Active Substance: ACETAMINOPHEN
     Dates: start: 20190606, end: 20190606
  3. SODIUM CHLORIDE BOLUS [Concomitant]
     Dates: start: 20190604, end: 20190604
  4. SODIUM CHLORIDE BOLUS [Concomitant]
     Dates: start: 20190606, end: 20190606
  5. DIPHENHYDRAMINE ELIXIR [Concomitant]
     Dates: start: 20190606, end: 20190606
  6. GAMMAGARD LIQUID [Suspect]
     Active Substance: HUMAN IMMUNOGLOBULIN G
     Indication: KAWASAKI^S DISEASE
     Dosage: ?          OTHER FREQUENCY:TIMES 2 DOSES;?
     Route: 041
     Dates: start: 20190604, end: 20190606
  7. D5/0.9NS + 20 KCL [Concomitant]
     Dates: start: 20190606, end: 20190606

REACTIONS (2)
  - Haemolytic anaemia [None]
  - Anti A antibody positive [None]

NARRATIVE: CASE EVENT DATE: 20190608
